FAERS Safety Report 7633044-7 (Version None)
Quarter: 2011Q3

REPORT INFORMATION
  Report Type: 
  Country: None (occurrence: None)
  Receive Date: 20110725
  Receipt Date: 20110714
  Transmission Date: 20111222
  Serious: Yes (Hospitalization, Other)
  Sender: FDA-Public Use
  Company Number: PHEH2006US08130

PATIENT
  Sex: Male
  Weight: 69 kg

DRUGS (58)
  1. AREDIA [Suspect]
     Route: 042
  2. PERCOCET [Concomitant]
  3. FRAGMIN [Concomitant]
  4. CLONAZEPAM [Concomitant]
  5. CONCERTA [Concomitant]
  6. TETANUS VACCINE ^PASTEUR^ [Concomitant]
  7. ELAVIL [Concomitant]
  8. AUGMENTIN '125' [Concomitant]
  9. CHEMOTHERAPEUTICS NOS [Concomitant]
  10. SENOKOT                                 /USA/ [Concomitant]
  11. TRAZODONE HCL [Concomitant]
  12. ZOLOFT [Concomitant]
     Dosage: 200 MG, QD
  13. PREVACID [Concomitant]
     Dosage: 30 MG, QD
  14. VIOXX [Concomitant]
     Dosage: 25 MG, QD
  15. TESTOSTERONE [Concomitant]
     Dosage: 5 MG, QD
  16. CARDIZEM CD [Concomitant]
     Dosage: 180 MG, QD
  17. DETROL                                  /USA/ [Concomitant]
  18. ZOMETA [Suspect]
  19. ACETAMINOPHEN AND HYDROCODONE BITARTRATE [Concomitant]
  20. DIGOXIN [Concomitant]
  21. CALCIUM CARBONATE [Concomitant]
     Dosage: 1500 MG, DAILY
  22. OXYCODONE HCL [Concomitant]
  23. COUMADIN [Concomitant]
  24. LIDOCAINE [Concomitant]
  25. PROPOXYPHENE NAPSYLATE W/ ACETAMINOPHEN [Concomitant]
  26. KLONOPIN [Concomitant]
  27. MIACALCIN [Concomitant]
     Indication: OSTEOPOROSIS
  28. PROTONIX [Concomitant]
     Dosage: 40 MG, QD
  29. PENICILLIN NOS [Concomitant]
     Dosage: 500 MG, BID
  30. BACTRIM [Concomitant]
  31. REMICADE [Concomitant]
  32. MIDRIN [Concomitant]
  33. ZESTRIL [Concomitant]
  34. METOPROLOL TARTRATE [Concomitant]
     Dosage: 25 MG, DAILY
     Dates: start: 20080314
  35. ACTONEL [Concomitant]
     Indication: OSTEOPOROSIS
     Dosage: 5 MG, QD
  36. PERI-COLACE [Concomitant]
  37. HUMIRA [Concomitant]
  38. NYSTATIN [Concomitant]
  39. DIFLUCAN [Concomitant]
     Dosage: 100 MG, QD
     Dates: start: 20080315
  40. FLOMAX [Concomitant]
  41. BUSPAR [Concomitant]
  42. FOLIC ACID [Concomitant]
  43. ATENOLOL [Concomitant]
  44. OXYCONTIN [Concomitant]
  45. EFFEXOR XR [Concomitant]
  46. PREDNISONE [Suspect]
     Indication: INFLAMMATION
     Dosage: 20 MG, QD
  47. METHADON AMIDONE HCL TAB [Concomitant]
     Dosage: 150 MG, QD
  48. CELEBREX [Concomitant]
  49. WELLBUTRIN [Concomitant]
     Dosage: 150 MG, QD
  50. CANDESARTAN CILEXETIL [Concomitant]
     Dosage: 60 MG, QD
  51. VITAMIN D [Concomitant]
     Dosage: 400 IU, DAILY
  52. METHOTREXATE [Concomitant]
  53. EFFEXOR [Concomitant]
  54. RITALIN [Concomitant]
  55. MULTI-VITAMINS [Concomitant]
  56. ASPIRIN [Concomitant]
  57. PLAQUENIL [Concomitant]
  58. AMIODARONE HCL [Concomitant]

REACTIONS (100)
  - MULTIPLE MYELOMA [None]
  - IMPAIRED HEALING [None]
  - HYPOGONADISM [None]
  - DRY EYE [None]
  - BLOOD CREATINE PHOSPHOKINASE INCREASED [None]
  - OEDEMA PERIPHERAL [None]
  - OESOPHAGEAL STENOSIS [None]
  - SPINAL OSTEOARTHRITIS [None]
  - INTERVERTEBRAL DISC PROTRUSION [None]
  - SPINAL COLUMN STENOSIS [None]
  - ANAEMIA [None]
  - RHEUMATOID ARTHRITIS [None]
  - PAIN [None]
  - MASTICATION DISORDER [None]
  - HYPERTENSION [None]
  - HERPES ZOSTER [None]
  - BUNION [None]
  - RADIUS FRACTURE [None]
  - MAJOR DEPRESSION [None]
  - GENERALISED ANXIETY DISORDER [None]
  - HYPOKALAEMIA [None]
  - DILATATION VENTRICULAR [None]
  - BACTERIAL SEPSIS [None]
  - ATELECTASIS [None]
  - HEPATIC CYST [None]
  - PYREXIA [None]
  - HYPERHIDROSIS [None]
  - NECK PAIN [None]
  - MUSCULOSKELETAL PAIN [None]
  - BONE DISORDER [None]
  - ANIMAL BITE [None]
  - DRUG ABUSE [None]
  - CHEST PAIN [None]
  - GINGIVAL RECESSION [None]
  - DISTURBANCE IN ATTENTION [None]
  - ABDOMINAL PAIN [None]
  - SCAR [None]
  - PLEURAL EFFUSION [None]
  - CARDIAC OUTPUT DECREASED [None]
  - BASAL CELL CARCINOMA [None]
  - CONFUSIONAL STATE [None]
  - ATRIAL FIBRILLATION [None]
  - OSTEONECROSIS OF JAW [None]
  - TREMOR [None]
  - BLOOD CALCIUM DECREASED [None]
  - NEOPLASM MALIGNANT [None]
  - BONE MARROW OEDEMA [None]
  - BENIGN PROSTATIC HYPERPLASIA [None]
  - ARRHYTHMIA [None]
  - BACK INJURY [None]
  - CELLULITIS [None]
  - RIB FRACTURE [None]
  - DEPRESSION [None]
  - RASH [None]
  - CARDIAC DISORDER [None]
  - CATARACT [None]
  - AZOTAEMIA [None]
  - CONSTIPATION [None]
  - SMALL INTESTINAL OBSTRUCTION [None]
  - ORAL DISORDER [None]
  - HAEMANGIOMA [None]
  - DISSEMINATED INTRAVASCULAR COAGULATION [None]
  - ASTHENIA [None]
  - TONGUE DISCOLOURATION [None]
  - GLOSSODYNIA [None]
  - STAPHYLOCOCCAL INFECTION [None]
  - CYST [None]
  - OSTEOPOROSIS [None]
  - ACROCHORDON [None]
  - VISION BLURRED [None]
  - HAEMATURIA [None]
  - NEURALGIA [None]
  - FISTULA [None]
  - RENAL FAILURE ACUTE [None]
  - URINARY TRACT INFECTION [None]
  - WEIGHT DECREASED [None]
  - BONE NEOPLASM MALIGNANT [None]
  - FIBROMYALGIA [None]
  - OSTEITIS [None]
  - SPINAL FRACTURE [None]
  - BONE PAIN [None]
  - DIZZINESS [None]
  - BLOOD ALBUMIN DECREASED [None]
  - FALL [None]
  - MULTIPLE FRACTURES [None]
  - ORAL CANDIDIASIS [None]
  - DEHYDRATION [None]
  - BACK PAIN [None]
  - OSTEOARTHRITIS [None]
  - DEFORMITY [None]
  - SKIN ULCER [None]
  - ANOGENITAL WARTS [None]
  - FRACTURE [None]
  - LIMB INJURY [None]
  - TOOTH INJURY [None]
  - LIP DISORDER [None]
  - SKIN PAPILLOMA [None]
  - CERVICOBRACHIAL SYNDROME [None]
  - CORONARY ARTERY DISEASE [None]
  - THROMBOCYTOPENIA [None]
